FAERS Safety Report 22866918 (Version 3)
Quarter: 2023Q4

REPORT INFORMATION
  Report Type: Report from Study
  Country: US (occurrence: US)
  Receive Date: 20230825
  Receipt Date: 20231104
  Transmission Date: 20240109
  Serious: No
  Sender: FDA-Public Use
  Company Number: US-002147023-NVSC2023US183599

PATIENT
  Age: 38 Year
  Sex: Female

DRUGS (1)
  1. KESIMPTA [Suspect]
     Active Substance: OFATUMUMAB
     Indication: Relapsing multiple sclerosis
     Dosage: 20 MG, QMO
     Route: 058
     Dates: start: 20221028

REACTIONS (6)
  - Gingival disorder [Unknown]
  - Aphthous ulcer [Unknown]
  - Back pain [Unknown]
  - Osteoporosis [Unknown]
  - Osteopenia [Unknown]
  - Food allergy [Unknown]

NARRATIVE: CASE EVENT DATE: 20221201
